FAERS Safety Report 16976701 (Version 1)
Quarter: 2019Q4

REPORT INFORMATION
  Report Type: Report from Study
  Country: CO (occurrence: CO)
  Receive Date: 20191030
  Receipt Date: 20191030
  Transmission Date: 20200122
  Serious: Yes (Hospitalization)
  Sender: FDA-Public Use
  Company Number: PHHY2019CO143134

PATIENT
  Sex: Female

DRUGS (3)
  1. JADENU [Suspect]
     Active Substance: DEFERASIROX
     Dosage: 540 MG, QD
     Route: 048
  2. JADENU [Suspect]
     Active Substance: DEFERASIROX
     Dosage: 360 MG, QD
     Route: 048
  3. JADENU [Suspect]
     Active Substance: DEFERASIROX
     Indication: THALASSAEMIA
     Dosage: 360 MG, QD
     Route: 048

REACTIONS (4)
  - Thalassaemia [Unknown]
  - Disease recurrence [Unknown]
  - Off label use [Unknown]
  - Gastrointestinal infection [Unknown]
